FAERS Safety Report 20086623 (Version 1)
Quarter: 2021Q4

REPORT INFORMATION
  Report Type: Spontaneous
  Country: CA (occurrence: CA)
  Receive Date: 20211118
  Receipt Date: 20211118
  Transmission Date: 20220303
  Serious: Yes (Life-Threatening, Other)
  Sender: FDA-Public Use
  Company Number: CA-MYLANLABS-2021M1084002

PATIENT
  Age: 32 Year
  Sex: Female

DRUGS (1)
  1. BUPROPION [Suspect]
     Active Substance: BUPROPION
     Indication: Anxiety
     Dosage: 150 MILLIGRAM, QD
     Route: 048

REACTIONS (8)
  - Abnormal behaviour [Unknown]
  - Self esteem decreased [Unknown]
  - Anger [Unknown]
  - Confusional state [Unknown]
  - Crying [Unknown]
  - Panic attack [Unknown]
  - Paranoia [Unknown]
  - Product substitution issue [Unknown]
